FAERS Safety Report 14177372 (Version 1)
Quarter: 2017Q4

REPORT INFORMATION
  Report Type: Spontaneous
  Country: JP (occurrence: JP)
  Receive Date: 20171110
  Receipt Date: 20171110
  Transmission Date: 20180321
  Serious: Yes (Hospitalization, Other)
  Sender: FDA-Public Use
  Company Number: JP-GLAXOSMITHKLINE-JP2017JPN169853

PATIENT
  Age: 26 Year
  Sex: Female

DRUGS (2)
  1. ANAFRANIL [Concomitant]
     Active Substance: CLOMIPRAMINE HYDROCHLORIDE
     Dosage: 10 DF, SINGLE
  2. LAMICTAL [Suspect]
     Active Substance: LAMOTRIGINE
     Dosage: 10 DF, SINGLE
     Route: 048

REACTIONS (5)
  - Overdose [Unknown]
  - Generalised tonic-clonic seizure [Recovered/Resolved]
  - Hyponatraemia [Recovering/Resolving]
  - Water intoxication [Unknown]
  - Depressed level of consciousness [Unknown]
